FAERS Safety Report 8384064-9 (Version None)
Quarter: 2012Q2

REPORT INFORMATION
  Report Type: 
  Country: None (occurrence: None)
  Receive Date: 20120524
  Receipt Date: 20120516
  Transmission Date: 20120825
  Serious: Yes (Other)
  Sender: FDA-Public Use
  Company Number: CHPA2012US002740

PATIENT
  Sex: Female

DRUGS (1)
  1. PHENYLEPHRINE HYDROCHLORIDE [Suspect]
     Indication: MULTIPLE ALLERGIES
     Dosage: PER LABEL
     Route: 045
     Dates: end: 20120203

REACTIONS (1)
  - DRUG DEPENDENCE [None]
